FAERS Safety Report 14443728 (Version 2)
Quarter: 2018Q3

REPORT INFORMATION
  Report Type: Report from Study
  Country: US (occurrence: US)
  Receive Date: 20180125
  Receipt Date: 20180724
  Transmission Date: 20181010
  Serious: Yes (Other)
  Sender: FDA-Public Use
  Company Number: US-AMGEN-USASL2017157387

PATIENT
  Age: 64 Year
  Sex: Female

DRUGS (3)
  1. DEXAMETHASONE. [Suspect]
     Active Substance: DEXAMETHASONE
     Indication: PLASMA CELL MYELOMA
     Dosage: UNK
     Route: 065
  2. POMALYST [Suspect]
     Active Substance: POMALIDOMIDE
     Indication: PLASMA CELL MYELOMA
     Dosage: UNK
     Route: 065
  3. KYPROLIS [Suspect]
     Active Substance: CARFILZOMIB
     Indication: PLASMA CELL MYELOMA
     Dosage: UNK, ON DAYS 1, 2, 8, 9, 15 AND 16 EVERY 28 DAYS
     Route: 065

REACTIONS (19)
  - Neuropathy peripheral [Recovering/Resolving]
  - Psychomotor hyperactivity [Unknown]
  - Hypophagia [Recovering/Resolving]
  - Dysgeusia [Recovering/Resolving]
  - Night sweats [Unknown]
  - Insomnia [Unknown]
  - Anxiety [Unknown]
  - Fall [Unknown]
  - Food craving [Unknown]
  - Diarrhoea [Recovering/Resolving]
  - Fatigue [Not Recovered/Not Resolved]
  - Disturbance in attention [Unknown]
  - Malaise [Recovering/Resolving]
  - Off label use [Unknown]
  - Loss of personal independence in daily activities [Unknown]
  - Abdominal discomfort [Recovering/Resolving]
  - Muscular weakness [Unknown]
  - Weight fluctuation [Unknown]
  - Joint injury [Recovering/Resolving]

NARRATIVE: CASE EVENT DATE: 2017
